FAERS Safety Report 9304176 (Version 4)
Quarter: 2013Q2

REPORT INFORMATION
  Report Type: Spontaneous
  Country: AU (occurrence: AU)
  Receive Date: 20130522
  Receipt Date: 20130614
  Transmission Date: 20140414
  Serious: Yes (Death, Other)
  Sender: FDA-Public Use
  Company Number: AU-B.I. PHARMACEUTICALS,INC./RIDGEFIELD-2013-AU-00606AU

PATIENT
  Age: 89 Year
  Sex: Male

DRUGS (3)
  1. PRADAXA [Suspect]
     Indication: ATRIAL FIBRILLATION
     Dosage: 220 MG
     Dates: start: 20110621
  2. NOTEN [Concomitant]
     Dosage: 50 MG
     Dates: start: 2010
  3. MICARDIS [Concomitant]
     Indication: HYPERTENSION
     Dosage: 40 MG
     Dates: start: 2011

REACTIONS (5)
  - Acute myocardial infarction [Fatal]
  - Traumatic fracture [Unknown]
  - Femoral neck fracture [Unknown]
  - Sepsis [Unknown]
  - Fall [Unknown]
